FAERS Safety Report 8129964-X (Version None)
Quarter: 2012Q1

REPORT INFORMATION
  Report Type: 
  Country: None (occurrence: None)
  Receive Date: 20120210
  Receipt Date: 20120208
  Transmission Date: 20120608
  Serious: Yes (Death, Other)
  Sender: FDA-Public Use
  Company Number: CO-ABBOTT-12P-036-0902936-00

PATIENT
  Sex: Female
  Weight: 44 kg

DRUGS (1)
  1. HUMIRA [Suspect]
     Indication: RHEUMATOID ARTHRITIS
     Route: 058
     Dates: start: 20110427, end: 20120104

REACTIONS (4)
  - TREATMENT NONCOMPLIANCE [None]
  - HYPOPHAGIA [None]
  - FALL [None]
  - HIP FRACTURE [None]
